FAERS Safety Report 4380037-1 (Version None)
Quarter: 2004Q2

REPORT INFORMATION
  Report Type: 
  Country: None (occurrence: None)
  Receive Date: 20040614
  Receipt Date: 20040602
  Transmission Date: 20050107
  Serious: Yes (Hospitalization, Other)
  Sender: FDA-Public Use
  Company Number: JP-SHR-04-023912

PATIENT
  Age: 59 Year
  Sex: Male

DRUGS (5)
  1. PROSCOPE 370 (IOPROMIDE) [Suspect]
     Indication: ARTERIOGRAM CORONARY
     Dosage: 120 ML, 1 DOSE, INTRA-ARTERIAL
     Route: 013
     Dates: start: 20040324, end: 20040324
  2. RAVONA (PENTOBARBITAL CALCIUM) [Suspect]
     Indication: PREMEDICATION
     Dosage: 50 MG, 1 DOSE, ORAL
     Route: 048
     Dates: start: 20040324, end: 20040324
  3. HEPARIN SODIUM [Suspect]
     Indication: PROPHYLAXIS
     Dosage: 3000 IU, 1 DOSE, INTRAVENOUS
     Route: 042
     Dates: start: 20040324, end: 20040324
  4. PROTAMINE SULFATE [Suspect]
     Indication: SURGICAL HAEMOSTASIS
     Dosage: 100 MG, 1 DOSE, INTRAVENOUS
     Route: 042
     Dates: start: 20040324, end: 20040324
  5. NITOROL [Concomitant]

REACTIONS (3)
  - ANAPHYLACTIC SHOCK [None]
  - BODY TEMPERATURE DECREASED [None]
  - CARDIAC ARREST [None]
